FAERS Safety Report 10909010 (Version 1)
Quarter: 2015Q1

REPORT INFORMATION
  Report Type: Spontaneous
  Country: US (occurrence: US)
  Receive Date: 20150312
  Receipt Date: 20150312
  Transmission Date: 20150721
  Serious: No
  Sender: FDA-Public Use
  Company Number: US-SA-2014SA032234

PATIENT
  Age: 55 Year
  Sex: Male

DRUGS (1)
  1. NASACORT ALLERGY 24HR [Suspect]
     Active Substance: TRIAMCINOLONE ACETONIDE
     Indication: PRODUCT USED FOR UNKNOWN INDICATION
     Route: 065

REACTIONS (5)
  - Swelling face [Recovered/Resolved]
  - Lacrimation increased [Recovered/Resolved]
  - Headache [Recovered/Resolved]
  - Rash pruritic [Recovered/Resolved]
  - Eye swelling [Recovered/Resolved]
